FAERS Safety Report 9547115 (Version 1)
Quarter: 2013Q2

REPORT INFORMATION
  Report Type: Spontaneous
  Country: US (occurrence: None)
  Receive Date: 20130524
  Receipt Date: 20130524
  Transmission Date: 20140414
  Serious: No
  Sender: FDA-Public Use
  Company Number: PHEH212US024463

PATIENT
  Sex: 0

DRUGS (4)
  1. GILENYA (FINGOLIMOD) CAPSULE [Suspect]
     Indication: MULTIPLE SCLEROSIS
     Route: 048
  2. BETASERON [Suspect]
     Indication: MULTIPLE SCLEROSIS
  3. COPAXONE (GLATIRAMER ACETATE) [Suspect]
     Indication: MULTIPLE SCLEROSIS
  4. REBIF (INTERFERON BETA-1A) [Suspect]
     Indication: MULTIPLE SCLEROSIS

REACTIONS (1)
  - Multiple sclerosis relapse [None]
